FAERS Safety Report 18472600 (Version 1)
Quarter: 2020Q4

REPORT INFORMATION
  Report Type: Spontaneous
  Country: FR (occurrence: FR)
  Receive Date: 20201106
  Receipt Date: 20201106
  Transmission Date: 20210114
  Serious: Yes (Other)
  Sender: FDA-Public Use
  Company Number: FR-ABBVIE-20K-056-3637641-00

PATIENT
  Age: 70 Year
  Sex: Male

DRUGS (2)
  1. VENCLYXTO [Suspect]
     Active Substance: VENETOCLAX
     Indication: PRODUCT USED FOR UNKNOWN INDICATION
     Route: 048
  2. VENCLYXTO [Suspect]
     Active Substance: VENETOCLAX
     Dosage: 14 DAYS
     Route: 048

REACTIONS (2)
  - Malignant melanoma [Unknown]
  - Off label use [Unknown]
